FAERS Safety Report 23240413 (Version 1)
Quarter: 2023Q4

REPORT INFORMATION
  Report Type: Spontaneous
  Country: US (occurrence: US)
  Receive Date: 20231129
  Receipt Date: 20231129
  Transmission Date: 20240109
  Serious: Yes (Hospitalization)
  Sender: FDA-Public Use
  Company Number: US-JNJFOC-20231164001

PATIENT

DRUGS (1)
  1. TECVAYLI [Suspect]
     Active Substance: TECLISTAMAB-CQYV
     Indication: Product used for unknown indication
     Dosage: BEING ON TECLISTAMAB FOR GREATER THAN 2 CYCLES (ON FULL TREATMENT DOSE)
     Route: 065

REACTIONS (1)
  - Rash [Recovered/Resolved]
